FAERS Safety Report 11784330 (Version 1)
Quarter: 2015Q4

REPORT INFORMATION
  Report Type: Spontaneous
  Country: BR (occurrence: BR)
  Receive Date: 20151128
  Receipt Date: 20151128
  Transmission Date: 20160305
  Serious: Yes (Death)
  Sender: FDA-Public Use
  Company Number: PHHY2015BR151318

PATIENT
  Age: 74 Year
  Sex: Male

DRUGS (1)
  1. ATENOPRESS [Suspect]
     Active Substance: ATENOLOL
     Indication: PRODUCT USED FOR UNKNOWN INDICATION
     Route: 065

REACTIONS (3)
  - Vascular rupture [None]
  - Myocardial infarction [Fatal]
  - Fall [None]
